FAERS Safety Report 8834693 (Version 1)
Quarter: 2012Q4

REPORT INFORMATION
  Report Type: Spontaneous
  Country: US (occurrence: None)
  Receive Date: 20120925
  Receipt Date: 20120925
  Transmission Date: 20130627
  Serious: Yes (Death, Life-Threatening, Hospitalization, Disabling)
  Sender: FDA-Public Use
  Company Number: 2012PROUSA01997

PATIENT
  Age: 90 Year
  Sex: Male
  Weight: 83 kg

DRUGS (16)
  1. PROVENGE (SIPULEUCEL-T) SUSPENSION [Suspect]
     Indication: PROSTATE CANCER METASTATIC
     Route: 042
     Dates: start: 20120726, end: 20120726
  2. PROVENGE (SIPULEUCEL-T) SUSPENSION [Suspect]
     Indication: PROSTATE CANCER METASTATIC
     Route: 042
     Dates: start: 20120809, end: 20120809
  3. PROVENGE (SIPULEUCEL-T) SUSPENSION [Suspect]
     Indication: PROSTATE CANCER METASTATIC
     Route: 042
     Dates: start: 20120823, end: 20120823
  4. ALBUTEROL (SALBUTAMOL SULFATE) [Concomitant]
  5. CARVEDILOL (CARVEDILOL) [Concomitant]
  6. FUROSEMIDE (FUROSEMIDE) [Concomitant]
  7. LOSARTAN (LOSARTAN POTASSIUM) [Concomitant]
  8. PEPCID (FAMOTIDINE) [Concomitant]
  9. SYMBICORT (BUDESONIDE, FORMOTEROL FUMARATE) [Concomitant]
  10. VITAMIN D (COLECALCIFEROL) [Concomitant]
  11. TRAMADOL (TRAMADOL HYDROCHLORIDE) [Concomitant]
  12. PROPAFENONE (PROPAFENONE HYDROCHLORIDE) [Concomitant]
  13. GABAPENTIN (GABAPENTIN) [Concomitant]
  14. AGGRENOX (ACETYLSALICYLIC ACID, DIPYRIDAMOLE) [Concomitant]
  15. KLONOPIN (CLONAZEPAM) [Concomitant]
  16. OXYGEN (OXYGEN) [Concomitant]

REACTIONS (10)
  - Dyspnoea [None]
  - Cardiac failure congestive [None]
  - Hypovolaemia [None]
  - Nephropathy [None]
  - Prostate cancer [None]
  - Lung infiltration [None]
  - Atelectasis [None]
  - Pleural effusion [None]
  - Renal failure acute [None]
  - Urinary tract infection enterococcal [None]
